FAERS Safety Report 7879864-5 (Version None)
Quarter: 2011Q4

REPORT INFORMATION
  Report Type: 
  Country: None (occurrence: None)
  Receive Date: 20111101
  Receipt Date: 20111004
  Transmission Date: 20120403
  Serious: Yes (Hospitalization)
  Sender: FDA-Public Use
  Company Number: US-ROCHE-1002254

PATIENT
  Age: 66 Year
  Sex: Male
  Weight: 82.7 kg

DRUGS (9)
  1. FLUOROURACIL [Suspect]
     Indication: RECTAL CANCER
     Route: 040
     Dates: start: 20080211
  2. FLUOROURACIL [Suspect]
     Dosage: 2.4 G/M2
     Route: 042
     Dates: start: 20080211
  3. ZOFRAN [Concomitant]
  4. LEUCOVORIN CALCIUM [Suspect]
     Indication: RECTAL CANCER
     Dosage: TOTAL DOSE ADMINISTERED THIS COURSE 824 MG
     Route: 042
     Dates: start: 20080211
  5. PHENERGAN HCL [Concomitant]
  6. OXALIPLATIN [Suspect]
     Indication: RECTAL CANCER
     Dosage: TOTAL DOSE ADMINISTERED THIS COURSE 175 MG
     Route: 042
     Dates: start: 20080211
  7. AVASTIN [Suspect]
     Indication: RECTAL CANCER
     Dosage: TOTAL DOSE ADMINISTERED THIS COURSE 440 MG
     Route: 042
     Dates: start: 20080211
  8. IMODIUM [Concomitant]
  9. LOMOTIL [Concomitant]

REACTIONS (4)
  - BLOOD CREATININE INCREASED [None]
  - DEHYDRATION [None]
  - WEIGHT DECREASED [None]
  - DIARRHOEA [None]
